FAERS Safety Report 11645335 (Version 1)
Quarter: 2015Q4

REPORT INFORMATION
  Report Type: Spontaneous
  Country: US (occurrence: US)
  Receive Date: 20151020
  Receipt Date: 20151020
  Transmission Date: 20160304
  Serious: Yes (Hospitalization)
  Sender: FDA-Public Use
  Company Number: US-NPS_PHARMACEUTICALS-002128

PATIENT
  Age: 60 Year
  Sex: Male

DRUGS (2)
  1. GATTEX [Suspect]
     Active Substance: TEDUGLUTIDE\WATER
     Indication: SHORT-BOWEL SYNDROME
     Dosage: DF
     Route: 058
     Dates: start: 20150521
  2. TPN [Concomitant]
     Active Substance: AMINO ACIDS\DEXTROSE\ELECTROLYTES NOS\SOYBEAN OIL
     Indication: MEDICAL DIET
     Dosage: DF
     Dates: end: 201506

REACTIONS (12)
  - Device related infection [Unknown]
  - Chest pain [Unknown]
  - Chills [Unknown]
  - Pyrexia [Unknown]
  - Headache [Recovered/Resolved]
  - Weight increased [Unknown]
  - Drug dose omission [Recovered/Resolved]
  - Tremor [Unknown]
  - Nausea [Recovered/Resolved]
  - Migraine [Unknown]
  - Dizziness [Unknown]
  - Abdominal pain [Not Recovered/Not Resolved]

NARRATIVE: CASE EVENT DATE: 2015
